FAERS Safety Report 9848585 (Version 1)
Quarter: 2014Q1

REPORT INFORMATION
  Report Type: Spontaneous
  Country: AT (occurrence: AT)
  Receive Date: 20140128
  Receipt Date: 20140128
  Transmission Date: 20141002
  Serious: Yes (Other)
  Sender: FDA-Public Use
  Company Number: AT-BAYER-2014-007031

PATIENT
  Sex: Male

DRUGS (2)
  1. XOFIGO [Suspect]
  2. XARELTO [Suspect]
     Indication: ATRIAL FIBRILLATION

REACTIONS (1)
  - Unevaluable event [None]
